FAERS Safety Report 6447232-9 (Version None)
Quarter: 2009Q4

REPORT INFORMATION
  Report Type: 
  Country: None (occurrence: None)
  Receive Date: 20091119
  Receipt Date: 20091106
  Transmission Date: 20100525
  Serious: Yes (Hospitalization)
  Sender: FDA-Public Use
  Company Number: PHHY2009FR48625

PATIENT
  Sex: Female

DRUGS (6)
  1. TEGRETOL [Suspect]
     Indication: EPILEPSY
     Dosage: UNK
     Route: 048
  2. KEPPRA [Suspect]
     Indication: EPILEPSY
     Dosage: UNK
  3. KEPPRA [Suspect]
     Indication: SCHIZOPHRENIA
  4. AMLOR [Suspect]
     Indication: HYPERTENSION
     Dosage: UNK
     Route: 048
  5. ABILIFY [Suspect]
     Indication: EPILEPSY
     Dosage: UNK
     Route: 048
     Dates: start: 20090701
  6. ABILIFY [Suspect]
     Indication: SCHIZOPHRENIA

REACTIONS (7)
  - BLOOD CREATINE PHOSPHOKINASE INCREASED [None]
  - HAEMATOMA [None]
  - HYPOTENSION [None]
  - MUSCULOSKELETAL STIFFNESS [None]
  - MYALGIA [None]
  - MYOGLOBIN BLOOD INCREASED [None]
  - NEUROLEPTIC MALIGNANT SYNDROME [None]
